FAERS Safety Report 9226056 (Version 2)
Quarter: 2013Q2

REPORT INFORMATION
  Report Type: Report from Study
  Country: US (occurrence: US)
  Receive Date: 20130411
  Receipt Date: 20130422
  Transmission Date: 20140414
  Serious: Yes (Hospitalization)
  Sender: FDA-Public Use
  Company Number: US-ROCHE-1211997

PATIENT
  Age: 71 Year
  Sex: Female

DRUGS (7)
  1. TRASTUZUMAB [Suspect]
     Indication: BREAST CANCER
     Route: 042
  2. BENTYL [Concomitant]
     Route: 065
     Dates: start: 2012
  3. CYMBALTA [Concomitant]
     Route: 065
     Dates: start: 2011
  4. CARBAMAZEPINE [Concomitant]
     Route: 065
     Dates: start: 2013
  5. LORAZEPAM [Concomitant]
     Route: 065
     Dates: start: 2012
  6. SUCRALFATE [Concomitant]
     Route: 065
     Dates: start: 20120608
  7. PERTUZUMAB [Suspect]
     Indication: BREAST CANCER
     Route: 042
     Dates: start: 20120329

REACTIONS (1)
  - Chest pain [Recovered/Resolved]
